FAERS Safety Report 12808972 (Version 2)
Quarter: 2016Q4

REPORT INFORMATION
  Report Type: Spontaneous
  Country: US (occurrence: US)
  Receive Date: 20161004
  Receipt Date: 20161104
  Transmission Date: 20170207
  Serious: Yes (Other)
  Sender: FDA-Public Use
  Company Number: US-BAYER-2016-192096

PATIENT
  Age: 25 Year
  Sex: Female
  Weight: 64 kg

DRUGS (1)
  1. SKYLA [Suspect]
     Active Substance: LEVONORGESTREL
     Indication: CONTRACEPTION
     Dosage: 14 MCG/24HR, CONT
     Route: 015
     Dates: start: 20151019, end: 20161003

REACTIONS (5)
  - Post abortion haemorrhage [None]
  - Abortion spontaneous [None]
  - Drug ineffective [None]
  - Pregnancy with contraceptive device [None]
  - Human chorionic gonadotropin decreased [None]

NARRATIVE: CASE EVENT DATE: 20161003
